FAERS Safety Report 9119272 (Version 2)
Quarter: 2014Q1

REPORT INFORMATION
  Report Type: Spontaneous
  Country: DE (occurrence: DE)
  Receive Date: 20130207
  Receipt Date: 20140122
  Transmission Date: 20141002
  Serious: Yes (Life-Threatening, Hospitalization, Other)
  Sender: FDA-Public Use
  Company Number: DE-JNJFOC-20130112525

PATIENT
  Age: 78 Year
  Sex: Female

DRUGS (12)
  1. XARELTO [Suspect]
     Indication: CEREBROVASCULAR ACCIDENT PROPHYLAXIS
     Route: 048
     Dates: end: 20121218
  2. XARELTO [Suspect]
     Indication: ATRIAL FIBRILLATION
     Route: 048
     Dates: end: 20121218
  3. BISOPROLOL [Concomitant]
     Route: 048
  4. AMIODARON [Concomitant]
     Indication: TACHYARRHYTHMIA
     Route: 048
  5. HYDROCHLOROTHIAZIDE W/VALSARTAN [Concomitant]
     Indication: HYPERTENSION
     Dosage: 160MG/12.5MG
     Route: 048
  6. CORDAREX [Concomitant]
     Route: 065
  7. DELIX [Concomitant]
     Dosage: 5-2.5-0 MG, 1-1-0 BID
     Route: 065
  8. L-THYROX [Concomitant]
     Route: 065
  9. NORVASC [Concomitant]
     Route: 065
  10. ACC [Concomitant]
     Route: 065
  11. TOREM [Concomitant]
     Route: 065
  12. CIPRAMIL [Concomitant]
     Route: 065

REACTIONS (5)
  - Cerebral haemorrhage [Not Recovered/Not Resolved]
  - Depressed level of consciousness [Not Recovered/Not Resolved]
  - Dysphagia [Unknown]
  - Aphasia [Unknown]
  - Hemiparesis [Unknown]
